FAERS Safety Report 4351441-2 (Version None)
Quarter: 2004Q2

REPORT INFORMATION
  Report Type: 
  Country: None (occurrence: None)
  Receive Date: 20040503
  Receipt Date: 20040331
  Transmission Date: 20050107
  Serious: Yes (Other)
  Sender: FDA-Public Use
  Company Number: PHEH2004US03734

PATIENT
  Age: 48 Year
  Sex: Female

DRUGS (11)
  1. ZELNORM [Suspect]
     Indication: IRRITABLE BOWEL SYNDROME
     Dosage: 6 MG, QD
     Route: 048
     Dates: start: 20021101, end: 20031201
  2. ZELNORM [Suspect]
     Dosage: 6 MG/EVERY 2 TO 3 DAYS
     Route: 048
     Dates: start: 20031201
  3. ZELNORM [Suspect]
     Dosage: 6 MG, QD
     Route: 048
     Dates: start: 20040311, end: 20040313
  4. ZELNORM [Suspect]
     Dosage: 6 MG, BID
     Route: 048
     Dates: start: 20040314
  5. LACTULOSE [Concomitant]
     Dosage: UNK, BID
  6. DULCOLAX [Concomitant]
  7. BACLOFEN [Concomitant]
     Indication: MUSCLE SPASMS
     Dosage: UNK, BID
  8. ZANAFLEX [Concomitant]
     Indication: MUSCLE SPASMS
     Dosage: UNK, QHS
  9. DARVOCET-N 100 [Concomitant]
     Indication: PAIN
     Dosage: TID (PRN)
  10. MOTRIN [Concomitant]
     Indication: PAIN
     Dosage: 800 MG TID (PRN)
  11. XANAX [Concomitant]
     Indication: INSOMNIA
     Dosage: UNK, PRN

REACTIONS (11)
  - ABDOMINAL DISCOMFORT [None]
  - ABDOMINAL DISTENSION [None]
  - AEROPHAGIA [None]
  - BLOOD URINE [None]
  - CONSTIPATION [None]
  - DEHYDRATION [None]
  - DYSURIA [None]
  - INFLUENZA LIKE ILLNESS [None]
  - RECTAL PROLAPSE [None]
  - THERAPY NON-RESPONDER [None]
  - VAGINAL PROLAPSE [None]
